FAERS Safety Report 5390441-0 (Version None)
Quarter: 2007Q3

REPORT INFORMATION
  Report Type: 
  Country: None (occurrence: None)
  Receive Date: 20070718
  Receipt Date: 20060919
  Transmission Date: 20080115
  Serious: No
  Sender: FDA-Public Use
  Company Number: US-KINGPHARMUSA00001-K200601195

PATIENT

DRUGS (1)
  1. LEVOXYL [Suspect]
     Indication: HYPOTHYROIDISM
     Dosage: 125 MCG, QD
     Route: 048
     Dates: start: 19970101

REACTIONS (7)
  - ARTHRALGIA [None]
  - CONSTIPATION [None]
  - DYSPNOEA [None]
  - EYE SWELLING [None]
  - HEART RATE INCREASED [None]
  - INSOMNIA [None]
  - PALPITATIONS [None]
